FAERS Safety Report 17370722 (Version 1)
Quarter: 2020Q1

REPORT INFORMATION
  Report Type: Other
  Country: US (occurrence: US)
  Receive Date: 20200205
  Receipt Date: 20200205
  Transmission Date: 20200409
  Serious: No
  Sender: FDA-Public Use
  Company Number: US-AMAG PHARMACEUTICALS, INC.-AMAG202000270

PATIENT
  Age: 26 Year
  Sex: Female
  Weight: 76.27 kg

DRUGS (1)
  1. MAKENA [Suspect]
     Active Substance: HYDROXYPROGESTERONE CAPROATE
     Indication: PREMATURE DELIVERY
     Dosage: 250MG/ML, WEEKLY
     Route: 058
     Dates: end: 20200101

REACTIONS (4)
  - Blood glucose decreased [Recovered/Resolved]
  - Hyperhidrosis [Unknown]
  - Heart rate decreased [Recovered/Resolved]
  - Pallor [Unknown]

NARRATIVE: CASE EVENT DATE: 20200101
